FAERS Safety Report 4488167-0 (Version None)
Quarter: 2004Q4

REPORT INFORMATION
  Report Type: 
  Country: None (occurrence: None)
  Receive Date: 20041022
  Receipt Date: 20041018
  Transmission Date: 20050328
  Serious: Yes (Life-Threatening, Disabling)
  Sender: FDA-Public Use
  Company Number: 2004-120958-NL

PATIENT
  Age: 48 Year
  Sex: Male

DRUGS (5)
  1. MIRTAZAPINE [Suspect]
     Dosage: 30 MG QD
     Dates: start: 20040727, end: 20040816
  2. CARBAMAZEPINE [Concomitant]
  3. RISPERIDONE [Concomitant]
  4. LORAZEPAM [Concomitant]
  5. LORMATEZEPAM [Concomitant]

REACTIONS (6)
  - CONDITION AGGRAVATED [None]
  - DEPRESSION [None]
  - FOOT FRACTURE [None]
  - INSOMNIA [None]
  - SUICIDE ATTEMPT [None]
  - TENDON INJURY [None]
